FAERS Safety Report 15729437 (Version 1)
Quarter: 2018Q4

REPORT INFORMATION
  Report Type: Spontaneous
  Country: US (occurrence: US)
  Receive Date: 20181216
  Receipt Date: 20181216
  Transmission Date: 20190205
  Serious: No
  Sender: FDA-Public Use
  Company Number: None

PATIENT
  Age: 3 Month
  Sex: Male
  Weight: 20.25 kg

DRUGS (1)
  1. ZARBEE^S NATURALS CHILDREN^S SLEEP WITH MELATONIN [Suspect]
     Active Substance: MELATONIN
     Indication: INSOMNIA
     Dosage: ?          QUANTITY:50 GUMMIES;?
     Route: 048
     Dates: start: 20181201, end: 20181215

REACTIONS (1)
  - Product contamination physical [None]

NARRATIVE: CASE EVENT DATE: 20181216
